FAERS Safety Report 5068282-3 (Version None)
Quarter: 2006Q3

REPORT INFORMATION
  Report Type: 
  Country: None (occurrence: None)
  Receive Date: 20060802
  Receipt Date: 20050713
  Transmission Date: 20061208
  Serious: No
  Sender: FDA-Public Use
  Company Number: US-BRISTOL-MYERS SQUIBB COMPANY-13035779

PATIENT
  Age: 55 Year
  Sex: Male
  Weight: 75 kg

DRUGS (7)
  1. COUMADIN [Suspect]
     Indication: HEART VALVE REPLACEMENT
     Dosage: STARTED OCT-2004; CURRENT DOSE: 3 MG DAILY X 6 DAYS + 4.5 MG DAILY X 1 DAY
     Route: 048
     Dates: start: 20041001
  2. PAXIL [Interacting]
     Dates: start: 20050710
  3. ASPIRIN [Concomitant]
  4. LEVOXYL [Concomitant]
  5. CARDIZEM [Concomitant]
  6. LIPITOR [Concomitant]
  7. ALTACE [Concomitant]

REACTIONS (2)
  - DRUG INTERACTION [None]
  - INTERNATIONAL NORMALISED RATIO INCREASED [None]
